FAERS Safety Report 16070924 (Version 1)
Quarter: 2019Q1

REPORT INFORMATION
  Report Type: Spontaneous
  Country: DE (occurrence: DE)
  Receive Date: 20190314
  Receipt Date: 20190314
  Transmission Date: 20190418
  Serious: Yes (Other)
  Sender: FDA-Public Use
  Company Number: DE-TORRENT-00013511

PATIENT
  Age: 69 Year
  Sex: Female

DRUGS (8)
  1. PROPRANOLOL [Concomitant]
     Active Substance: PROPRANOLOL HYDROCHLORIDE
     Indication: PRODUCT USED FOR UNKNOWN INDICATION
  2. PRAMIPEXOLE. [Suspect]
     Active Substance: PRAMIPEXOLE
     Indication: PARKINSON^S DISEASE
     Dosage: UNKNOWN
  3. LORAZEPAM. [Concomitant]
     Active Substance: LORAZEPAM
     Indication: HYPOTHYROIDISM
     Dosage: 0.5 TO 2 TABLETS (1 MG) PER DAY AS NEEDED
  4. RAMIPRIL. [Concomitant]
     Active Substance: RAMIPRIL
     Indication: HYPERTENSION
  5. CLONAZEPAM. [Suspect]
     Active Substance: CLONAZEPAM
     Indication: SLEEP DISORDER
     Dosage: AT NIGHT
  6. LEVODOPA/CARBIDOPA 100/25 MG [Suspect]
     Active Substance: CARBIDOPA\LEVODOPA
     Indication: PARKINSON^S DISEASE
     Dosage: AT FIVE TIME POINTS PER DAY
  7. BUDIPINE [Concomitant]
     Active Substance: BUDIPINE
     Indication: PRODUCT USED FOR UNKNOWN INDICATION
  8. LEVOTHYROXINE. [Concomitant]
     Active Substance: LEVOTHYROXINE
     Indication: HYPOTHYROIDISM

REACTIONS (9)
  - Mobility decreased [Unknown]
  - Depressive symptom [Unknown]
  - Psychotic disorder [Unknown]
  - On and off phenomenon [Unknown]
  - Dizziness [Recovered/Resolved]
  - Fatigue [Recovered/Resolved]
  - Off label use [Unknown]
  - Drug ineffective [Unknown]
  - Hallucination [Unknown]
